FAERS Safety Report 14469057 (Version 8)
Quarter: 2024Q1

REPORT INFORMATION
  Report Type: Spontaneous
  Country: ES (occurrence: ES)
  Receive Date: 20180131
  Receipt Date: 20240116
  Transmission Date: 20240409
  Serious: Yes (Death, Other)
  Sender: FDA-Public Use
  Company Number: ES-JNJFOC-20180129353

PATIENT

DRUGS (13)
  1. STELARA [Suspect]
     Active Substance: USTEKINUMAB
     Indication: Rheumatoid arthritis
     Route: 058
  2. STELARA [Suspect]
     Active Substance: USTEKINUMAB
     Indication: Psoriatic arthropathy
  3. STELARA [Suspect]
     Active Substance: USTEKINUMAB
     Indication: Ankylosing spondylitis
  4. STELARA [Suspect]
     Active Substance: USTEKINUMAB
     Indication: Arthritis enteropathic
  5. STELARA [Suspect]
     Active Substance: USTEKINUMAB
     Indication: Spondyloarthropathy
  6. STELARA [Suspect]
     Active Substance: USTEKINUMAB
     Indication: SAPHO syndrome
  7. STELARA [Suspect]
     Active Substance: USTEKINUMAB
     Indication: Ankylosing spondylitis
  8. STELARA [Suspect]
     Active Substance: USTEKINUMAB
     Indication: Seronegative arthritis
  9. STELARA [Suspect]
     Active Substance: USTEKINUMAB
     Indication: Behcet^s syndrome
  10. STELARA [Suspect]
     Active Substance: USTEKINUMAB
     Indication: Juvenile idiopathic arthritis
  11. STELARA [Suspect]
     Active Substance: USTEKINUMAB
     Indication: Seronegative arthritis
  12. STELARA [Suspect]
     Active Substance: USTEKINUMAB
     Indication: Systemic lupus erythematosus
  13. STELARA [Suspect]
     Active Substance: USTEKINUMAB
     Indication: Hidradenitis

REACTIONS (5)
  - Death [Fatal]
  - Neoplasm malignant [Unknown]
  - Adverse event [Unknown]
  - Exposure during pregnancy [Unknown]
  - Drug ineffective [Unknown]
